FAERS Safety Report 16060506 (Version 3)
Quarter: 2019Q3

REPORT INFORMATION
  Report Type: Spontaneous
  Country: FR (occurrence: FR)
  Receive Date: 20190312
  Receipt Date: 20190913
  Transmission Date: 20191004
  Serious: Yes (Hospitalization, Disabling, Other)
  Sender: FDA-Public Use
  Company Number: FR-ROCHE-2275903

PATIENT
  Age: 71 Year
  Sex: Female
  Weight: 50 kg

DRUGS (14)
  1. TERALITHE [Suspect]
     Active Substance: LITHIUM CARBONATE
     Indication: PRODUCT USED FOR UNKNOWN INDICATION
     Route: 065
  2. BACTRIM [Concomitant]
     Active Substance: SULFAMETHOXAZOLE\TRIMETHOPRIM
  3. CELLCEPT [Suspect]
     Active Substance: MYCOPHENOLATE MOFETIL\MYCOPHENOLATE MOFETIL HYDROCHLORIDE
     Indication: BONE MARROW TRANSPLANT
     Route: 048
     Dates: start: 20190110, end: 20190215
  4. DELURSAN [Concomitant]
     Active Substance: URSODIOL
     Route: 065
  5. KARDEGIC [Concomitant]
     Active Substance: ASPIRIN DL-LYSINE
     Route: 065
  6. ZELITREX [Suspect]
     Active Substance: VALACYCLOVIR HYDROCHLORIDE
     Indication: VIRAL INFECTION
     Dosage: 500 MG, BID
     Route: 048
     Dates: start: 201806
  7. PRAVASTATINE [PRAVASTATIN] [Suspect]
     Active Substance: PRAVASTATIN
     Indication: HYPOCHOLESTEROLAEMIA
     Dosage: 40 MG, QD
     Route: 065
  8. QUITAXON [Concomitant]
     Active Substance: DOXEPIN HYDROCHLORIDE
  9. LOXEN [NICARDIPINE HYDROCHLORIDE] [Suspect]
     Active Substance: NICARDIPINE HYDROCHLORIDE
     Indication: PRODUCT USED FOR UNKNOWN INDICATION
     Dosage: UNK
     Route: 065
  10. AMOXICILLIN. [Suspect]
     Active Substance: AMOXICILLIN
     Indication: INFECTION
     Dosage: 500 MG, BID
     Route: 065
     Dates: start: 20190110
  11. LITHIUM CARBONATE. [Suspect]
     Active Substance: LITHIUM CARBONATE
     Indication: DEPRESSION
     Dosage: 2 DF, QD??BRAND NAME: THERALITE
     Route: 048
     Dates: start: 2017, end: 20190215
  12. VICTAN [Suspect]
     Active Substance: ETHYL LOFLAZEPATE
     Indication: DEPRESSION
     Dosage: 3 DF, QD (2 DF IN THE MORNING 1 DF IN THE EVENING)
     Route: 048
     Dates: start: 2017, end: 20190215
  13. NEORAL [Suspect]
     Active Substance: CYCLOSPORINE
     Indication: BONE MARROW TRANSPLANT
     Dosage: DOSE REDUCED
     Route: 042
     Dates: start: 20190111
  14. AMLODIPINE [Concomitant]
     Active Substance: AMLODIPINE BESYLATE
     Route: 065

REACTIONS (20)
  - Movement disorder [Recovered/Resolved]
  - Aphasia [Recovered/Resolved]
  - Renal failure [Not Recovered/Not Resolved]
  - Decreased appetite [Recovered/Resolved]
  - Balance disorder [Not Recovered/Not Resolved]
  - Incontinence [Recovered/Resolved]
  - Off label use [Unknown]
  - Memory impairment [Unknown]
  - Choking [Recovered/Resolved]
  - Confusional state [Recovered/Resolved]
  - Fatigue [Not Recovered/Not Resolved]
  - Dysphagia [Recovered/Resolved]
  - Bedridden [Not Recovered/Not Resolved]
  - Product use in unapproved indication [Unknown]
  - Agitation [Recovered/Resolved]
  - Depression [Not Recovered/Not Resolved]
  - Alexithymia [Not Recovered/Not Resolved]
  - Condition aggravated [Recovered/Resolved]
  - Feeding disorder [Unknown]
  - Decreased appetite [Recovered/Resolved]

NARRATIVE: CASE EVENT DATE: 201901
